FAERS Safety Report 12464850 (Version 2)
Quarter: 2016Q2

REPORT INFORMATION
  Report Type: Spontaneous
  Country: US (occurrence: US)
  Receive Date: 20160614
  Receipt Date: 20160621
  Transmission Date: 20160815
  Serious: Yes (Other)
  Sender: FDA-Public Use
  Company Number: US-CELGENEUS-USA-2016053845

PATIENT
  Sex: Female

DRUGS (1)
  1. REVLIMID [Suspect]
     Active Substance: LENALIDOMIDE
     Indication: METASTASIS
     Dosage: 25 MILLIGRAM
     Route: 048
     Dates: start: 20160416

REACTIONS (4)
  - Multiple allergies [Unknown]
  - Abdominal pain upper [Not Recovered/Not Resolved]
  - Fracture [Unknown]
  - Insomnia [Unknown]

NARRATIVE: CASE EVENT DATE: 2016
